FAERS Safety Report 10203093 (Version 2)
Quarter: 2014Q2

REPORT INFORMATION
  Report Type: Report from Study
  Country: US (occurrence: US)
  Receive Date: 20140529
  Receipt Date: 20140620
  Transmission Date: 20141212
  Serious: No
  Sender: FDA-Public Use
  Company Number: US-ROCHE-1408014

PATIENT
  Age: 39 Year
  Sex: Male
  Weight: 73.8 kg

DRUGS (23)
  1. MPDL3280A [Suspect]
     Indication: NEOPLASM
     Dosage: LAST DOSE PRIOR TO AE ONSET: 1067MG ON 06/MAR/2014
     Route: 042
     Dates: start: 20140220
  2. BEVACIZUMAB [Suspect]
     Indication: NEOPLASM
     Dosage: LAST DOSE PRIOR TO AE ONSET: 762MG ON 06/MAR/2014
     Route: 042
     Dates: start: 20140220
  3. OXALIPLATIN [Suspect]
     Indication: NEOPLASM
     Dosage: LAST DOSE PRIOR TO AE ONSET: 161MG ON 06/MAR/2014
     Route: 042
     Dates: start: 20140220
  4. LEUCOVORIN CALCIUM [Suspect]
     Indication: NEOPLASM
     Dosage: LAST DOSE PRIOR TO AE ONSET: 756MG ON 06/MAR/2014
     Route: 042
     Dates: start: 20140220
  5. 5-FU [Suspect]
     Indication: NEOPLASM
     Dosage: LAST DOSE PRIOR TO AE ONSET: 756MG ON 06/MAR/2014
     Route: 040
     Dates: start: 20140220
  6. 5-FU [Suspect]
     Dosage: LAST DOSE PRIOR TO AE ONSET: 4536MG ON 06/MAR/2014
     Route: 042
     Dates: start: 20140220
  7. EFFEXOR [Concomitant]
     Indication: ANXIETY
     Route: 048
     Dates: start: 201402
  8. ATIVAN [Concomitant]
     Indication: INSOMNIA
     Route: 048
     Dates: start: 20140219
  9. ATIVAN [Concomitant]
     Indication: ANXIETY
  10. COMPAZINE [Concomitant]
     Indication: NAUSEA
     Route: 048
  11. BENTYL [Concomitant]
     Indication: ABDOMINAL PAIN
     Route: 048
  12. MIRALAX [Concomitant]
     Indication: CONSTIPATION
     Route: 048
     Dates: start: 20140219
  13. SENNA [Concomitant]
     Indication: CONSTIPATION
     Route: 048
     Dates: start: 20140227
  14. COLACE [Concomitant]
     Indication: CONSTIPATION
     Route: 048
     Dates: start: 20140306
  15. REGLAN [Concomitant]
     Indication: NAUSEA
     Route: 048
     Dates: start: 20140312
  16. PHENERGAN [Concomitant]
     Indication: NAUSEA
     Route: 048
     Dates: start: 20140312
  17. EMLA CREAM [Concomitant]
     Route: 061
     Dates: start: 20140218
  18. ZEGERID [Concomitant]
     Indication: GASTRITIS
     Route: 048
  19. CULTURELLE [Concomitant]
     Indication: CONSTIPATION
     Route: 048
  20. DICYCLOMINE HCL [Concomitant]
     Route: 048
  21. PROMETHAZINE HCL [Concomitant]
     Route: 048
  22. VENLAFAXINE HCL [Concomitant]
     Route: 048
  23. MELATONIN [Concomitant]
     Indication: INSOMNIA
     Route: 048

REACTIONS (1)
  - Aspartate aminotransferase increased [Recovered/Resolved]
